FAERS Safety Report 8207608-6 (Version None)
Quarter: 2012Q1

REPORT INFORMATION
  Report Type: 
  Country: None (occurrence: None)
  Receive Date: 20120314
  Receipt Date: 20120314
  Transmission Date: 20120608
  Serious: Yes (Other)
  Sender: FDA-Public Use
  Company Number: None

PATIENT
  Age: 44 Year
  Sex: Female
  Weight: 68.038 kg

DRUGS (1)
  1. CYMBALTA [Suspect]
     Indication: BACK PAIN
     Dosage: 20.0 MG
     Route: 048
     Dates: start: 20111015, end: 20120305

REACTIONS (22)
  - MUSCLE TWITCHING [None]
  - PAIN [None]
  - DRUG WITHDRAWAL SYNDROME [None]
  - FALL [None]
  - NAUSEA [None]
  - INSOMNIA [None]
  - PUPILLARY REFLEX IMPAIRED [None]
  - PALPITATIONS [None]
  - PARAESTHESIA [None]
  - MOOD ALTERED [None]
  - NIGHTMARE [None]
  - DIZZINESS [None]
  - MIGRAINE [None]
  - ABDOMINAL PAIN [None]
  - EYE PAIN [None]
  - INJURY [None]
  - VISION BLURRED [None]
  - IMPAIRED DRIVING ABILITY [None]
  - DISTURBANCE IN ATTENTION [None]
  - DIARRHOEA [None]
  - INFLUENZA LIKE ILLNESS [None]
  - GAIT DISTURBANCE [None]
